FAERS Safety Report 8849204 (Version 1)
Quarter: 2012Q4

REPORT INFORMATION
  Report Type: 
  Country: US (occurrence: US)
  Receive Date: 20121019
  Receipt Date: 20121019
  Transmission Date: 20130627
  Serious: Yes (Other)
  Sender: FDA-Public Use
  Company Number: PHEH2012US020315

PATIENT
  Sex: Female

DRUGS (4)
  1. DIOVAN [Suspect]
     Indication: HYPERTENSION
     Dosage: 1 DF, daily
     Route: 048
  2. ATENOLOL [Concomitant]
  3. SIMVASTATIN [Concomitant]
  4. RANITIDINE [Concomitant]

REACTIONS (1)
  - Cataract [Unknown]
